FAERS Safety Report 9123571 (Version 1)
Quarter: 2013Q1

REPORT INFORMATION
  Report Type: Spontaneous
  Country: US (occurrence: US)
  Receive Date: 20130115
  Receipt Date: 20130115
  Transmission Date: 20140127
  Serious: Yes (Congenital Anomaly)
  Sender: FDA-Public Use
  Company Number: US-009507513-1301USA003539

PATIENT
  Sex: Male

DRUGS (5)
  1. SINGULAIR [Suspect]
     Dosage: 1 TABLET
     Route: 064
  2. FORADIL [Suspect]
     Route: 064
  3. BRICANYL [Suspect]
     Route: 064
  4. AMINOPHYLLINE [Suspect]
     Dosage: TOTAL DAILY DOSE : 300 MG
     Route: 064
  5. XYZAL [Suspect]
     Dosage: TOTAL DAILY DOSE: 5 MG
     Route: 064

REACTIONS (4)
  - Large for dates baby [Unknown]
  - Exophthalmos [Unknown]
  - Congenital anomaly [Unknown]
  - Foetal exposure during pregnancy [Unknown]
